FAERS Safety Report 5206323-0 (Version None)
Quarter: 2007Q1

REPORT INFORMATION
  Report Type: 
  Country: None (occurrence: None)
  Receive Date: 20070111
  Receipt Date: 20070102
  Transmission Date: 20070707
  Serious: Yes (Hospitalization, Other)
  Sender: FDA-Public Use
  Company Number: US-PFIZER INC-2006081455

PATIENT
  Sex: Female

DRUGS (17)
  1. NEURONTIN [Suspect]
     Indication: DEPRESSION
     Dates: start: 20010302, end: 20020523
  2. NEURONTIN [Suspect]
     Indication: BIPOLAR DISORDER
  3. ALL OTHER THERAPEUTIC PRODUCTS [Suspect]
  4. PREMARIN [Concomitant]
  5. SYNTHROID [Concomitant]
     Dates: end: 20020421
  6. HYDROCODONE [Concomitant]
     Dates: end: 20020510
  7. LORAZEPAM [Concomitant]
     Dates: end: 20020510
  8. WELLBUTRIN [Concomitant]
     Dates: end: 20020510
  9. DEPAKOTE [Concomitant]
     Dates: end: 20020328
  10. ULTRAM [Concomitant]
     Dates: end: 20020413
  11. CYCLOBENZAPRINE HCL [Concomitant]
     Dates: end: 20020523
  12. NYSTATIN [Concomitant]
     Dates: end: 20020118
  13. ALLOPURINOL SODIUM [Concomitant]
     Dates: end: 20020419
  14. CIPROFLOXACIN [Concomitant]
     Dates: end: 20020322
  15. FUROSEMIDE [Concomitant]
     Dates: end: 20020422
  16. KLOR-CON [Concomitant]
     Dates: end: 20020313
  17. ZOCOR [Concomitant]
     Dates: end: 20020422

REACTIONS (3)
  - DRUG INEFFECTIVE [None]
  - MULTIPLE DRUG OVERDOSE [None]
  - SUICIDE ATTEMPT [None]
